FAERS Safety Report 15622178 (Version 2)
Quarter: 2019Q1

REPORT INFORMATION
  Report Type: Report from Study
  Country: US (occurrence: US)
  Receive Date: 20181115
  Receipt Date: 20190110
  Transmission Date: 20190417
  Serious: No
  Sender: FDA-Public Use
  Company Number: US-009507513-1811USA005982

PATIENT
  Age: 20 Year
  Sex: Female
  Weight: 44.44 kg

DRUGS (2)
  1. IMPLANON [Suspect]
     Active Substance: ETONOGESTREL
     Indication: PROPHYLAXIS
     Dosage: 1 DOSAGE FORM (3 YEAR IMPLANT)
     Route: 059
     Dates: start: 201808
  2. IMPLANON [Suspect]
     Active Substance: ETONOGESTREL
     Indication: CONTRACEPTION

REACTIONS (2)
  - Acne [Recovered/Resolved]
  - Urinary tract infection [Recovered/Resolved]
